FAERS Safety Report 4575835-5 (Version None)
Quarter: 2005Q1

REPORT INFORMATION
  Report Type: 
  Country: None (occurrence: None)
  Receive Date: 20050201
  Receipt Date: 20050201
  Transmission Date: 20050727
  Serious: Yes (Life-Threatening, Hospitalization)
  Sender: FDA-Public Use
  Company Number: None

PATIENT
  Age: 15 Year
  Sex: Female
  Weight: 54.4316 kg

DRUGS (1)
  1. LAMOTRIGINE [Suspect]
     Indication: TOXIC EPIDERMAL NECROLYSIS
     Dates: start: 20050101, end: 20050125

REACTIONS (1)
  - TOXIC EPIDERMAL NECROLYSIS [None]
